FAERS Safety Report 7070556-1 (Version None)
Quarter: 2010Q4

REPORT INFORMATION
  Report Type: 
  Country: None (occurrence: None)
  Receive Date: 20101029
  Receipt Date: 20101020
  Transmission Date: 20110411
  Serious: Yes (Other)
  Sender: FDA-Public Use
  Company Number: US-PFIZER INC-2010085970

PATIENT
  Sex: Female
  Weight: 68.027 kg

DRUGS (16)
  1. TOVIAZ [Suspect]
     Indication: HYPERTONIC BLADDER
     Dosage: 4 MG, 1X/DAY
     Route: 048
     Dates: start: 20100701
  2. CYCLOSPORINE [Concomitant]
     Indication: EYE DISORDER
     Dosage: UNK
  3. OPTIVE [Concomitant]
     Indication: EYE DISORDER
     Dosage: UNK
  4. MONTELUKAST [Concomitant]
     Dosage: UNK
  5. CALCIUM WITH VITAMIN D [Concomitant]
     Dosage: UNK
  6. ACETYLSALICYLIC ACID [Concomitant]
     Dosage: 81 MG, UNK
  7. WELLBUTRIN [Concomitant]
     Dosage: 100 MG, DAILY
  8. KLONOPIN [Concomitant]
     Dosage: 1 MG, 2X/DAY
  9. LUMIGAN [Concomitant]
     Indication: EYE DISORDER
     Dosage: 3.5 MG, UNK
  10. NEURONTIN [Concomitant]
     Dosage: 300 MG, DAILY
  11. MIDODRINE [Concomitant]
     Indication: HYPOTENSION
     Dosage: 5 MG, UNK
  12. FOSAMAX [Concomitant]
     Dosage: 70 MG, WEEKLY
  13. FLEXERIL [Concomitant]
     Dosage: UNK
  14. PRILOSEC [Concomitant]
     Dosage: UNK, DAILY
  15. ZETIA [Concomitant]
     Dosage: 10 MG, 1X/DAY
  16. DEPAKOTE [Concomitant]
     Dosage: 500 MG, 2X/DAY

REACTIONS (5)
  - JOINT SWELLING [None]
  - LIMB DISCOMFORT [None]
  - OEDEMA PERIPHERAL [None]
  - ROAD TRAFFIC ACCIDENT [None]
  - WEIGHT INCREASED [None]
